FAERS Safety Report 6005036-5 (Version None)
Quarter: 2008Q4

REPORT INFORMATION
  Report Type: 
  Country: None (occurrence: None)
  Receive Date: 20081216
  Receipt Date: 20081017
  Transmission Date: 20090506
  Serious: No
  Sender: FDA-Public Use
  Company Number: US-BAUSCH-2008BL004480

PATIENT
  Age: 20 Year
  Sex: Male
  Weight: 104 kg

DRUGS (2)
  1. NEOMYCIN AND POLYMXIN B SULFATES AND HYDROCORTISONE [Suspect]
     Route: 047
     Dates: start: 20081016, end: 20081017
  2. METHYLPREDNISOLONE 16MG TAB [Concomitant]
     Indication: HYPERSENSITIVITY
     Route: 048
     Dates: start: 20081017

REACTIONS (2)
  - EYE IRRITATION [None]
  - MEDICATION ERROR [None]
